FAERS Safety Report 23187221 (Version 3)
Quarter: 2024Q2

REPORT INFORMATION
  Report Type: Spontaneous
  Country: US (occurrence: US)
  Receive Date: 20231115
  Receipt Date: 20240410
  Transmission Date: 20240716
  Serious: Yes (Other)
  Sender: FDA-Public Use
  Company Number: US-BRISTOL-MYERS SQUIBB COMPANY-2023-164056

PATIENT
  Age: 63 Year
  Sex: Female
  Weight: 63.96 kg

DRUGS (2)
  1. POMALYST [Suspect]
     Active Substance: POMALIDOMIDE
     Indication: Plasma cell myeloma
     Dosage: DAILY FOR 21DAYS?DAILY X 21 DAY ON,7 OFF
     Route: 048
     Dates: start: 20231001
  2. POMALYST [Suspect]
     Active Substance: POMALIDOMIDE
     Dosage: DAILY FOR 21DAYS
     Route: 048
     Dates: start: 20231020

REACTIONS (3)
  - Abdominal discomfort [Unknown]
  - Diarrhoea [Unknown]
  - Acute myeloid leukaemia [Unknown]
